FAERS Safety Report 10768465 (Version 1)
Quarter: 2015Q1

REPORT INFORMATION
  Report Type: Spontaneous
  Country: US (occurrence: US)
  Receive Date: 20150206
  Receipt Date: 20150206
  Transmission Date: 20150721
  Serious: No
  Sender: FDA-Public Use
  Company Number: US-DRREDDYS-USA/USA/14/0043770

PATIENT
  Sex: Female
  Weight: 67.1 kg

DRUGS (1)
  1. ATORVASTATIN [Suspect]
     Active Substance: ATORVASTATIN
     Indication: BLOOD CHOLESTEROL INCREASED
     Route: 048
     Dates: start: 20140912

REACTIONS (4)
  - Blood cholesterol increased [Unknown]
  - Arthralgia [Unknown]
  - Incorrect dose administered [Unknown]
  - Pain [Unknown]
